FAERS Safety Report 5367949-7 (Version None)
Quarter: 2007Q2

REPORT INFORMATION
  Report Type: 
  Country: None (occurrence: None)
  Receive Date: 20070622
  Receipt Date: 20070612
  Transmission Date: 20071010
  Serious: Yes (Other)
  Sender: FDA-Public Use
  Company Number: US-PFIZER INC-2007033100

PATIENT
  Sex: Male
  Weight: 95.7 kg

DRUGS (4)
  1. CHANTIX [Suspect]
     Indication: TOBACCO ABUSE
  2. ZOLOFT [Concomitant]
  3. ALL OTHER THERAPEUTIC PRODUCTS [Concomitant]
  4. DIOVAN [Concomitant]

REACTIONS (5)
  - ANXIETY [None]
  - DISTURBANCE IN ATTENTION [None]
  - DRUG INEFFECTIVE [None]
  - DRUG WITHDRAWAL SYNDROME [None]
  - FEELING JITTERY [None]
